FAERS Safety Report 21449741 (Version 1)
Quarter: 2022Q4

REPORT INFORMATION
  Report Type: Spontaneous
  Country: US (occurrence: US)
  Receive Date: 20221013
  Receipt Date: 20221013
  Transmission Date: 20230113
  Serious: Yes (Other)
  Sender: FDA-Public Use
  Company Number: US-SANOFI-01309969

PATIENT
  Age: 70 Year
  Sex: Female

DRUGS (2)
  1. TOUJEO MAX [Suspect]
     Active Substance: INSULIN GLARGINE
     Indication: Type 2 diabetes mellitus
     Dosage: 80 IU, 1X AND DRUG TREATMENT DURATION:6-7 YEARS
  2. JARDIANCE [Concomitant]
     Active Substance: EMPAGLIFLOZIN
     Dosage: UNK

REACTIONS (5)
  - Retinal injury [Unknown]
  - Visual impairment [Unknown]
  - Injury associated with device [Unknown]
  - Muscular dystrophy [Unknown]
  - Product storage error [Unknown]
